FAERS Safety Report 7198226 (Version 4)
Quarter: 2014Q1

REPORT INFORMATION
  Report Type: Spontaneous
  Country: US (occurrence: US)
  Receive Date: 20091203
  Receipt Date: 20140320
  Transmission Date: 20141002
  Serious: Yes (Hospitalization, Other)
  Sender: FDA-Public Use
  Company Number: US-ELI_LILLY_AND_COMPANY-US200911006429

PATIENT
  Age: 71 Year
  Sex: Female

DRUGS (10)
  1. EVISTA [Suspect]
     Indication: OSTEOPENIA
     Dosage: 60 MG, DAILY (1/D)
     Route: 065
  2. EVISTA [Suspect]
     Indication: OSTEOARTHRITIS
  3. ASACOL [Concomitant]
     Dosage: UNK, UNKNOWN
     Route: 065
  4. ACUPRIL [Concomitant]
     Indication: HYPERTENSION
     Dosage: UNK, UNKNOWN
     Route: 065
  5. NORVASC [Concomitant]
     Indication: HYPERTENSION
     Dosage: UNK, UNKNOWN
     Route: 065
  6. LORAZEPAM [Concomitant]
     Dosage: UNK, UNKNOWN
     Route: 065
  7. CALTRATE /00108001/ [Concomitant]
     Dosage: UNK, UNKNOWN
     Route: 065
  8. MULTIVITAMIN [Concomitant]
     Dosage: UNK, UNKNOWN
     Route: 065
  9. AVENTYL [Concomitant]
     Dosage: UNK, UNKNOWN
     Route: 065
  10. RECLAST [Concomitant]
     Dosage: UNK
     Dates: start: 201107

REACTIONS (29)
  - Nephrolithiasis [Recovered/Resolved]
  - Breast calcifications [Unknown]
  - Uterine leiomyoma [Unknown]
  - Breast operation [Unknown]
  - Breast mass [Unknown]
  - Ovarian disorder [Unknown]
  - Macular degeneration [Unknown]
  - Hypertension [Unknown]
  - Type 2 diabetes mellitus [Unknown]
  - Blood calcium abnormal [Unknown]
  - Impaired healing [Unknown]
  - Blood glucose increased [Unknown]
  - Uterine dilation and curettage [Unknown]
  - Polyp [Unknown]
  - Colitis ulcerative [Unknown]
  - Back pain [Unknown]
  - Accident [Unknown]
  - Osteoporosis [Unknown]
  - Contrast media allergy [Unknown]
  - Fatigue [Unknown]
  - Malaise [Unknown]
  - Pain in extremity [Unknown]
  - Fall [Unknown]
  - Contusion [Unknown]
  - Bacterial infection [Unknown]
  - Arthralgia [Unknown]
  - Arthritis [Unknown]
  - Breast pain [Unknown]
  - Drug ineffective [Unknown]
